FAERS Safety Report 9692863 (Version 1)
Quarter: 2013Q4

REPORT INFORMATION
  Report Type: Spontaneous
  Country: US (occurrence: None)
  Receive Date: 20131115
  Receipt Date: 20131115
  Transmission Date: 20140711
  Serious: Yes (Other)
  Sender: FDA-Public Use
  Company Number: None

PATIENT
  Age: 82 Year
  Sex: Female
  Weight: 68.04 kg

DRUGS (1)
  1. RESTASIS [Suspect]
     Indication: SKIN IRRITATION
     Dosage: INSTILL 1 DROP, BOTH EYES TWICE DAILY
     Route: 047

REACTIONS (5)
  - Skin exfoliation [None]
  - Scab [None]
  - Pain of skin [None]
  - Erythema [None]
  - Skin irritation [None]
